FAERS Safety Report 6992671-0 (Version None)
Quarter: 2010Q3

REPORT INFORMATION
  Report Type: 
  Country: None (occurrence: None)
  Receive Date: 20100916
  Receipt Date: 20100916
  Transmission Date: 20110219
  Serious: Yes (Hospitalization)
  Sender: FDA-Public Use
  Company Number: None

PATIENT
  Age: 63 Year
  Sex: Female

DRUGS (1)
  1. CEFEPIME [Suspect]
     Indication: OSTEOMYELITIS
     Dosage: IV
     Route: 042

REACTIONS (5)
  - ABDOMINAL PAIN [None]
  - DIALYSIS [None]
  - INFUSION RELATED REACTION [None]
  - RENAL FAILURE ACUTE [None]
  - TUBULOINTERSTITIAL NEPHRITIS [None]
